FAERS Safety Report 12765472 (Version 1)
Quarter: 2016Q3

REPORT INFORMATION
  Report Type: Spontaneous
  Country: US (occurrence: US)
  Receive Date: 20160915
  Receipt Date: 20160915
  Transmission Date: 20161109
  Serious: No
  Sender: FDA-Public Use
  Company Number: None

PATIENT
  Sex: Male

DRUGS (1)
  1. REPATHA [Suspect]
     Active Substance: EVOLOCUMAB
     Dosage: REPATHA PEN 2 PACK 140MG - (FEQUENCY) EVERY 2 WEEKS
     Route: 058
     Dates: start: 20151229

REACTIONS (4)
  - Dyspnoea [None]
  - Pneumonia [None]
  - Chest discomfort [None]
  - Cough [None]
